FAERS Safety Report 26181631 (Version 1)
Quarter: 2025Q4

REPORT INFORMATION
  Report Type: Report from Study
  Country: US (occurrence: US)
  Receive Date: 20251221
  Receipt Date: 20251221
  Transmission Date: 20260119
  Serious: Yes (Other)
  Sender: JOHNSON AND JOHNSON
  Company Number: US-JNJFOC-20251225709

PATIENT
  Age: 59 Year
  Sex: Male

DRUGS (9)
  1. SPRAVATO [Suspect]
     Active Substance: ESKETAMINE
     Indication: Depression
     Dosage: ^^84 MG, 1 TOTAL DOSE^^
     Route: 045
     Dates: start: 20250922, end: 20250922
  2. SPRAVATO [Suspect]
     Active Substance: ESKETAMINE
     Dosage: ^^56 MG, 3 TOTAL DOSES^^
     Route: 045
     Dates: start: 20250925, end: 20251002
  3. SPRAVATO [Suspect]
     Active Substance: ESKETAMINE
     Dosage: ^^84 MG, 3 TOTAL DOSES^^
     Route: 045
     Dates: start: 20251007, end: 20251021
  4. SPRAVATO [Suspect]
     Active Substance: ESKETAMINE
     Dosage: ^^56 MG, 1 TOTAL DOSE^^
     Route: 045
     Dates: start: 20251028, end: 20251028
  5. SPRAVATO [Suspect]
     Active Substance: ESKETAMINE
     Dosage: ^^84 MG, 5 TOTAL DOSES^^
     Route: 045
     Dates: start: 20251104, end: 20251202
  6. SPRAVATO [Suspect]
     Active Substance: ESKETAMINE
     Dosage: ^^84 MG, 1 TOTAL DOSE^^, RECENT ADMINISTERED DOSE
     Route: 045
     Dates: start: 20251216, end: 20251216
  7. SPRAVATO [Suspect]
     Active Substance: ESKETAMINE
     Dosage: ^^56 MG, 4 TOTAL DOSES^^
     Route: 045
     Dates: start: 20250908, end: 20250918
  8. STRATTERA [Concomitant]
     Active Substance: ATOMOXETINE HYDROCHLORIDE
     Indication: Product used for unknown indication
  9. AMBIEN [Concomitant]
     Active Substance: ZOLPIDEM TARTRATE
     Indication: Product used for unknown indication

REACTIONS (1)
  - Hypertension [Not Recovered/Not Resolved]

NARRATIVE: CASE EVENT DATE: 20251216
